FAERS Safety Report 24383998 (Version 2)
Quarter: 2024Q4

REPORT INFORMATION
  Report Type: Spontaneous
  Country: US (occurrence: PR)
  Receive Date: 20241001
  Receipt Date: 20241227
  Transmission Date: 20250114
  Serious: No
  Sender: ABBVIE
  Company Number: PR-ABBVIE-5934365

PATIENT
  Sex: Female

DRUGS (4)
  1. SKYRIZI [Suspect]
     Active Substance: RISANKIZUMAB-RZAA
     Indication: Crohn^s disease
     Dosage: LAST ADMIN DATE: 2024
     Route: 058
     Dates: start: 20240601
  2. SKYRIZI [Suspect]
     Active Substance: RISANKIZUMAB-RZAA
     Indication: Crohn^s disease
     Dosage: 1ST INFUSION
     Route: 042
  3. SKYRIZI [Suspect]
     Active Substance: RISANKIZUMAB-RZAA
     Indication: Crohn^s disease
     Dosage: 2ND INFUSION
     Route: 042
  4. SKYRIZI [Suspect]
     Active Substance: RISANKIZUMAB-RZAA
     Indication: Crohn^s disease
     Dosage: 3RD INFUSION
     Route: 042

REACTIONS (1)
  - Granulomatous liver disease [Not Recovered/Not Resolved]

NARRATIVE: CASE EVENT DATE: 20240101
